FAERS Safety Report 24745303 (Version 8)
Quarter: 2025Q1

REPORT INFORMATION
  Report Type: Report from Study
  Country: US (occurrence: US)
  Receive Date: 20241217
  Receipt Date: 20250321
  Transmission Date: 20250409
  Serious: Yes (Hospitalization, Other)
  Sender: NOVARTIS
  Company Number: US-002147023-NVSC2024US226821

PATIENT
  Age: 51 Year
  Sex: Female

DRUGS (6)
  1. KESIMPTA [Suspect]
     Active Substance: OFATUMUMAB
     Indication: Relapsing multiple sclerosis
     Dosage: 20 MG, QMO
     Route: 058
     Dates: start: 20240920
  2. KESIMPTA [Suspect]
     Active Substance: OFATUMUMAB
     Dosage: UNK, QMO
     Route: 058
     Dates: start: 202410
  3. KESIMPTA [Suspect]
     Active Substance: OFATUMUMAB
     Dosage: 20 MG, QMO
     Route: 058
     Dates: end: 20250129
  4. INSULIN NOS [Concomitant]
     Active Substance: INSULIN NOS
     Indication: Product used for unknown indication
     Route: 065
  5. LANTUS [Concomitant]
     Active Substance: INSULIN GLARGINE
     Indication: Product used for unknown indication
     Route: 065
  6. ELIQUIS [Concomitant]
     Active Substance: APIXABAN
     Indication: Product used for unknown indication
     Route: 065

REACTIONS (23)
  - Fall [Recovered/Resolved]
  - Wound [Recovered/Resolved]
  - Infection [Recovered/Resolved]
  - Cellulitis [Recovering/Resolving]
  - Sepsis [Recovered/Resolved]
  - Multiple sclerosis relapse [Unknown]
  - Rash [Unknown]
  - Fall [Recovering/Resolving]
  - Wound [Recovering/Resolving]
  - Infection [Recovering/Resolving]
  - Blood pressure fluctuation [Unknown]
  - Stress [Unknown]
  - Decreased immune responsiveness [Recovered/Resolved]
  - Scab [Recovered/Resolved]
  - Blood pressure increased [Unknown]
  - Pain [Recovered/Resolved]
  - Fungal infection [Recovered/Resolved]
  - Back pain [Recovered/Resolved]
  - Migraine [Unknown]
  - Headache [Recovering/Resolving]
  - Decreased immune responsiveness [Unknown]
  - Back pain [Unknown]
  - Impaired healing [Unknown]

NARRATIVE: CASE EVENT DATE: 20241129
